FAERS Safety Report 6644055-2 (Version None)
Quarter: 2010Q1

REPORT INFORMATION
  Report Type: 
  Country: None (occurrence: None)
  Receive Date: 20100304
  Receipt Date: 20091125
  Transmission Date: 20100710
  Serious: Yes (Hospitalization)
  Sender: FDA-Public Use
  Company Number: 20091125CINRY1287

PATIENT
  Age: 54 Year
  Sex: Female

DRUGS (3)
  1. CINRYZE [Suspect]
     Indication: HEREDITARY ANGIOEDEMA
     Dosage: (2 IN 1 WK)
     Dates: start: 20091001
  2. CINRYZE [Suspect]
     Indication: PROPHYLAXIS
     Dosage: (2 IN 1 WK)
     Dates: start: 20091001
  3. DANAZOL [Concomitant]

REACTIONS (4)
  - ABDOMINAL DISTENSION [None]
  - CONDITION AGGRAVATED [None]
  - HEREDITARY ANGIOEDEMA [None]
  - OEDEMA PERIPHERAL [None]
